FAERS Safety Report 8387237-4 (Version None)
Quarter: 2012Q2

REPORT INFORMATION
  Report Type: 
  Country: None (occurrence: None)
  Receive Date: 20120525
  Receipt Date: 20120514
  Transmission Date: 20120825
  Serious: Yes (Other)
  Sender: FDA-Public Use
  Company Number: HK-ROCHE-1070644

PATIENT

DRUGS (2)
  1. TRIAMCINOLONE ACETONIDE [Suspect]
     Indication: DIABETIC RETINAL OEDEMA
     Dosage: SUB-TENON TRIAMCINOLONE
  2. AVASTIN [Suspect]
     Indication: DIABETIC RETINAL OEDEMA
     Route: 050

REACTIONS (4)
  - INTRAOCULAR PRESSURE INCREASED [None]
  - CATARACT [None]
  - RETINAL TEAR [None]
  - EYELID PTOSIS [None]
